FAERS Safety Report 8613280-3 (Version None)
Quarter: 2012Q3

REPORT INFORMATION
  Report Type: 
  Country: None (occurrence: None)
  Receive Date: 20120822
  Receipt Date: 20120803
  Transmission Date: 20120928
  Serious: Yes (Other)
  Sender: FDA-Public Use
  Company Number: JP-009507513-1208JPN003817

PATIENT

DRUGS (11)
  1. PEG-INTRON [Suspect]
     Indication: HEPATITIS C
     Dosage: 1.5MCG/KG/WEEK
     Route: 058
     Dates: start: 20120521, end: 20120604
  2. REBETOL [Suspect]
     Indication: HEPATITIS C
     Route: 048
     Dates: start: 20120521, end: 20120610
  3. NOVAMINE 15% [Concomitant]
     Indication: NAUSEA
     Route: 048
     Dates: start: 20120618, end: 20120723
  4. TELAVIC [Suspect]
     Indication: HEPATITIS C
     Route: 048
     Dates: start: 20120521, end: 20120610
  5. MOTILIUM [Concomitant]
     Indication: NAUSEA
     Dosage: 10MG/DAY, AS NEEDED.
     Route: 048
     Dates: start: 20120611, end: 20120617
  6. PEG-INTRON [Suspect]
     Dosage: 0.7MCG/KG/WEEK
     Route: 058
     Dates: start: 20120611
  7. DIOVAN [Concomitant]
     Indication: HYPERTENSION
     Route: 048
     Dates: end: 20120611
  8. OLOPATADINE HCL [Concomitant]
     Indication: DRUG ERUPTION
     Route: 048
     Dates: start: 20120524
  9. REBETOL [Suspect]
     Route: 048
     Dates: start: 20120611, end: 20120625
  10. REBETOL [Suspect]
     Route: 048
     Dates: start: 20120702
  11. TELAVIC [Suspect]
     Route: 048
     Dates: start: 20120611, end: 20120625

REACTIONS (3)
  - RENAL IMPAIRMENT [None]
  - HYPERURICAEMIA [None]
  - ANAEMIA [None]
